FAERS Safety Report 4361169-0 (Version None)
Quarter: 2004Q2

REPORT INFORMATION
  Report Type: 
  Country: None (occurrence: None)
  Receive Date: 20040507
  Receipt Date: 20031119
  Transmission Date: 20050107
  Serious: Yes (Other)
  Sender: FDA-Public Use
  Company Number: PHEH2003US11138

PATIENT
  Sex: Female

DRUGS (1)
  1. TEGRETOL [Suspect]
     Indication: GLOSSOPHARYNGEAL NEURALGIA
     Dosage: ORAL
     Route: 048

REACTIONS (1)
  - HEPATOTOXICITY [None]
